FAERS Safety Report 21042521 (Version 2)
Quarter: 2022Q3

REPORT INFORMATION
  Report Type: Spontaneous
  Country: DE (occurrence: DE)
  Receive Date: 20220705
  Receipt Date: 20220727
  Transmission Date: 20221027
  Serious: Yes (Hospitalization, Other)
  Sender: FDA-Public Use
  Company Number: DE-ASTELLAS-2022US016006

PATIENT
  Age: 78 Year
  Sex: Male

DRUGS (5)
  1. XTANDI [Suspect]
     Active Substance: ENZALUTAMIDE
     Indication: Hormone-refractory prostate cancer
     Dosage: 160 MG, ONCE DAILY (4 TABLETS OF 40MG EACH IN THE MORNING)
     Route: 048
     Dates: start: 202107
  2. AMLODIPIN ABZ [Concomitant]
     Indication: Product used for unknown indication
     Dosage: 5 MG, ONCE DAILY (1-0-0)
     Route: 048
  3. METOPROLOL [Concomitant]
     Active Substance: METOPROLOL
     Indication: Product used for unknown indication
     Dosage: 200 MG, ONCE DAILY (1-0-0)
     Route: 048
  4. RAMICLAIR [Concomitant]
     Indication: Product used for unknown indication
     Dosage: 10 MG, ONCE DAILY (1-0-0)
     Route: 048
  5. XGEVA [Concomitant]
     Active Substance: DENOSUMAB
     Indication: Hormone-refractory prostate cancer
     Dosage: UNK UNK, EVERY 4 WEEKS
     Route: 058
     Dates: start: 2021

REACTIONS (6)
  - Gait disturbance [Recovered/Resolved]
  - Disorientation [Recovered/Resolved]
  - General physical health deterioration [Recovered/Resolved]
  - Folate deficiency [Unknown]
  - Vitamin B12 deficiency [Unknown]
  - Posterior reversible encephalopathy syndrome [Unknown]

NARRATIVE: CASE EVENT DATE: 20211001
